FAERS Safety Report 23781541 (Version 1)
Quarter: 2024Q2

REPORT INFORMATION
  Report Type: Spontaneous
  Country: CA (occurrence: CA)
  Receive Date: 20240425
  Receipt Date: 20240425
  Transmission Date: 20240716
  Serious: Yes (Other)
  Sender: FDA-Public Use
  Company Number: CA-CELLTRION INC.-2023CA025415

PATIENT

DRUGS (14)
  1. INFLECTRA [Suspect]
     Active Substance: INFLIXIMAB-DYYB
     Indication: Crohn^s disease
     Dosage: 356 MG, Q 0, 2, 6 WEEKS, THEN EVERY 8 WEEKS
     Route: 042
     Dates: start: 20171121, end: 20200520
  2. INFLECTRA [Suspect]
     Active Substance: INFLIXIMAB-DYYB
     Dosage: 400 MG, EVERY 8 WEEKS
     Route: 042
     Dates: start: 20200708
  3. INFLECTRA [Suspect]
     Active Substance: INFLIXIMAB-DYYB
     Dosage: 400 MG, EVERY 8 WEEKS
     Route: 042
     Dates: start: 20231212
  4. CALCIUM [Concomitant]
     Active Substance: CALCIUM
     Dosage: 60 MG, DAILY
     Route: 065
  5. COENZYME Q10 [Concomitant]
     Active Substance: DIETARY SUPPLEMENT\UBIDECARENONE
     Dosage: 1 DF, DOSAGE INFO UNKNOWN
     Route: 065
  6. INDAPAMIDE\PERINDOPRIL ERBUMINE [Concomitant]
     Active Substance: INDAPAMIDE\PERINDOPRIL ERBUMINE
     Dosage: 1 DF, DAILY
     Route: 065
  7. CRESTOR [Concomitant]
     Active Substance: ROSUVASTATIN CALCIUM
     Dosage: 5 MG 3X/WEEK
     Route: 065
  8. DILANTIN [Concomitant]
     Active Substance: PHENYTOIN
     Dosage: 1 DF, DOSAGE INFO UNKNOWN
     Route: 065
     Dates: start: 1982
  9. DIVALPROEX SODIUM [Concomitant]
     Active Substance: DIVALPROEX SODIUM
     Dosage: 250 MG, 3X/DAY
     Route: 065
  10. L GLUTATHION [GLUTATHIONE] [Concomitant]
     Dosage: 1 DF, DOSAGE INFO UNKNOWN
     Route: 065
  11. VITAMINS [Concomitant]
     Active Substance: VITAMINS
     Dosage: 1 DF, DOSAGE INFO UNKNOWN
     Route: 065
  12. PANTOPRAZOLE MAGNESIUM [Concomitant]
     Active Substance: PANTOPRAZOLE MAGNESIUM
     Dosage: 40 MG, DAILY
     Route: 065
  13. VITAMIN C [Concomitant]
     Active Substance: ASCORBIC ACID
     Dosage: 1 DF, DOSAGE INFO UNKNOWN
     Route: 065
  14. CHOLECALCIFEROL [Concomitant]
     Active Substance: CHOLECALCIFEROL
     Dosage: 1 DF, DOSAGE INFO UNKNOWN
     Route: 065

REACTIONS (7)
  - Drug-induced liver injury [Unknown]
  - Disease recurrence [Unknown]
  - Autoimmune hepatitis [Unknown]
  - Cholangitis sclerosing [Unknown]
  - Hepatic steatosis [Unknown]
  - Antinuclear antibody increased [Unknown]
  - Hepatic enzyme increased [Unknown]

NARRATIVE: CASE EVENT DATE: 20230101
